FAERS Safety Report 9267170 (Version 51)
Quarter: 2016Q4

REPORT INFORMATION
  Report Type: Spontaneous
  Country: CA (occurrence: CA)
  Receive Date: 20130502
  Receipt Date: 20161110
  Transmission Date: 20170207
  Serious: Yes (Hospitalization, Other)
  Sender: FDA-Public Use
  Company Number: CA-ROCHE-1219830

PATIENT
  Age: 49 Year
  Sex: Female

DRUGS (40)
  1. XOLAIR [Suspect]
     Active Substance: OMALIZUMAB
     Route: 058
     Dates: start: 20131203
  2. XOLAIR [Suspect]
     Active Substance: OMALIZUMAB
     Route: 058
     Dates: start: 20140507
  3. XOLAIR [Suspect]
     Active Substance: OMALIZUMAB
     Route: 058
     Dates: start: 20140716
  4. XOLAIR [Suspect]
     Active Substance: OMALIZUMAB
     Route: 058
     Dates: start: 20141230
  5. XOLAIR [Suspect]
     Active Substance: OMALIZUMAB
     Route: 058
     Dates: start: 20151007
  6. ALLEGRA [Concomitant]
     Active Substance: FEXOFENADINE HYDROCHLORIDE
     Indication: PRODUCT USED FOR UNKNOWN INDICATION
     Route: 065
  7. XOLAIR [Suspect]
     Active Substance: OMALIZUMAB
     Route: 058
     Dates: start: 20140312
  8. XOLAIR [Suspect]
     Active Substance: OMALIZUMAB
     Route: 058
     Dates: start: 20160629
  9. VENTOLINE [Concomitant]
     Active Substance: ALBUTEROL
     Indication: PRODUCT USED FOR UNKNOWN INDICATION
     Dosage: UNK
     Route: 065
  10. NEXIUM [Concomitant]
     Active Substance: ESOMEPRAZOLE MAGNESIUM
     Indication: GASTROOESOPHAGEAL REFLUX DISEASE
     Dosage: QD
     Route: 065
  11. SYMBICORT [Concomitant]
     Active Substance: BUDESONIDE\FORMOTEROL FUMARATE DIHYDRATE
     Indication: PRODUCT USED FOR UNKNOWN INDICATION
     Route: 065
  12. XOLAIR [Suspect]
     Active Substance: OMALIZUMAB
     Route: 058
     Dates: start: 20130424
  13. XOLAIR [Suspect]
     Active Substance: OMALIZUMAB
     Route: 058
     Dates: start: 20131010
  14. XOLAIR [Suspect]
     Active Substance: OMALIZUMAB
     Route: 058
     Dates: start: 20140827
  15. XOLAIR [Suspect]
     Active Substance: OMALIZUMAB
     Route: 058
     Dates: start: 20160601
  16. XOLAIR [Suspect]
     Active Substance: OMALIZUMAB
     Route: 058
     Dates: start: 20140409
  17. XOLAIR [Suspect]
     Active Substance: OMALIZUMAB
     Route: 058
     Dates: start: 20160518
  18. XOLAIR [Suspect]
     Active Substance: OMALIZUMAB
     Indication: ASTHMA
     Route: 058
     Dates: start: 20130312
  19. XOLAIR [Suspect]
     Active Substance: OMALIZUMAB
     Route: 058
     Dates: start: 20130508
  20. XOLAIR [Suspect]
     Active Substance: OMALIZUMAB
     Route: 058
     Dates: start: 20130911
  21. XOLAIR [Suspect]
     Active Substance: OMALIZUMAB
     Route: 058
     Dates: start: 20151020
  22. XOLAIR [Suspect]
     Active Substance: OMALIZUMAB
     Route: 058
     Dates: start: 20160323
  23. XOLAIR [Suspect]
     Active Substance: OMALIZUMAB
     Route: 058
     Dates: start: 20160713
  24. XOLAIR [Suspect]
     Active Substance: OMALIZUMAB
     Route: 058
     Dates: start: 20160810
  25. XOLAIR [Suspect]
     Active Substance: OMALIZUMAB
     Route: 058
     Dates: start: 20160824
  26. XOLAIR [Suspect]
     Active Substance: OMALIZUMAB
     Route: 058
     Dates: start: 20130326
  27. XOLAIR [Suspect]
     Active Substance: OMALIZUMAB
     Route: 058
     Dates: start: 20130410
  28. XOLAIR [Suspect]
     Active Substance: OMALIZUMAB
     Route: 058
     Dates: start: 20141022
  29. XOLAIR [Suspect]
     Active Substance: OMALIZUMAB
     Route: 058
     Dates: start: 20150211
  30. XOLAIR [Suspect]
     Active Substance: OMALIZUMAB
     Route: 058
     Dates: start: 20160309
  31. XOLAIR [Suspect]
     Active Substance: OMALIZUMAB
     Route: 058
     Dates: start: 20160406
  32. FLU SHOT [Suspect]
     Active Substance: INFLUENZA VIRUS VACCINE
     Indication: INFLUENZA
     Route: 065
     Dates: start: 20161101
  33. ADVAIR HFA [Concomitant]
     Active Substance: FLUTICASONE PROPIONATE\SALMETEROL XINAFOATE
     Indication: PRODUCT USED FOR UNKNOWN INDICATION
     Dosage: BID
     Route: 065
  34. ALVESCO [Concomitant]
     Active Substance: CICLESONIDE
     Indication: PRODUCT USED FOR UNKNOWN INDICATION
     Dosage: 2 DF (PUFFS), QD
     Route: 065
  35. REACTINE (CANADA) [Concomitant]
     Active Substance: CETIRIZINE HYDROCHLORIDE
     Indication: PRODUCT USED FOR UNKNOWN INDICATION
     Route: 065
  36. XOLAIR [Suspect]
     Active Substance: OMALIZUMAB
     Route: 058
     Dates: start: 20130925
  37. XOLAIR [Suspect]
     Active Substance: OMALIZUMAB
     Route: 058
     Dates: start: 20140813
  38. XOLAIR [Suspect]
     Active Substance: OMALIZUMAB
     Route: 058
     Dates: start: 20150603
  39. XOLAIR [Suspect]
     Active Substance: OMALIZUMAB
     Route: 058
     Dates: start: 20160420
  40. XOLAIR [Suspect]
     Active Substance: OMALIZUMAB
     Route: 058
     Dates: start: 20160503

REACTIONS (72)
  - Road traffic accident [Unknown]
  - Nasopharyngitis [Recovered/Resolved]
  - Influenza [Recovered/Resolved]
  - Headache [Recovered/Resolved]
  - Asthma [Recovering/Resolving]
  - Injection site swelling [Recovering/Resolving]
  - Abasia [Unknown]
  - Hypoaesthesia [Unknown]
  - Haemorrhage [Recovered/Resolved]
  - Peripheral swelling [Unknown]
  - Injury [Unknown]
  - Tinnitus [Unknown]
  - Optic nerve disorder [Unknown]
  - Blood glucose increased [Unknown]
  - Heart rate increased [Not Recovered/Not Resolved]
  - Rash papular [Unknown]
  - Sinusitis [Recovered/Resolved]
  - Vaginal haemorrhage [Recovered/Resolved]
  - Metaplasia [Unknown]
  - Abdominal distension [Unknown]
  - Body temperature decreased [Unknown]
  - Discomfort [Recovered/Resolved]
  - Palpitations [Unknown]
  - Injection site erythema [Unknown]
  - Candida infection [Not Recovered/Not Resolved]
  - Respiratory disorder [Unknown]
  - Coagulation time prolonged [Unknown]
  - Pneumonia bacterial [Unknown]
  - Nasal congestion [Unknown]
  - Cough [Recovering/Resolving]
  - Insomnia [Unknown]
  - Arthritis [Unknown]
  - Bronchitis [Unknown]
  - Rales [Not Recovered/Not Resolved]
  - Joint swelling [Recovering/Resolving]
  - Skin infection [Recovered/Resolved]
  - Oral candidiasis [Unknown]
  - Pulmonary pain [Unknown]
  - Oropharyngeal pain [Unknown]
  - Dysgeusia [Recovering/Resolving]
  - Lung infection [Not Recovered/Not Resolved]
  - Urticaria [Not Recovered/Not Resolved]
  - Pulmonary mycosis [Recovering/Resolving]
  - Pneumonia [Recovering/Resolving]
  - Eye swelling [Unknown]
  - Breast mass [Unknown]
  - Bacterial infection [Unknown]
  - Lung disorder [Unknown]
  - Iron deficiency [Unknown]
  - Sputum discoloured [Recovering/Resolving]
  - Blood cholesterol increased [Unknown]
  - Back pain [Unknown]
  - Uterine spasm [Recovered/Resolved]
  - Peripheral venous disease [Unknown]
  - Osteoarthritis [Unknown]
  - Dyspnoea [Unknown]
  - Middle insomnia [Unknown]
  - Bronchopulmonary aspergillosis [Recovering/Resolving]
  - Pseudomonas infection [Unknown]
  - Pain in extremity [Unknown]
  - Pain [Recovered/Resolved]
  - Wheezing [Unknown]
  - Dizziness [Recovered/Resolved]
  - Malaise [Unknown]
  - Fatigue [Unknown]
  - Localised infection [Recovered/Resolved]
  - Oedema peripheral [Recovered/Resolved]
  - Contusion [Recovering/Resolving]
  - Neck pain [Unknown]
  - Gastrooesophageal reflux disease [Recovering/Resolving]
  - Tachycardia [Unknown]
  - Body temperature increased [Unknown]

NARRATIVE: CASE EVENT DATE: 20130312
